FAERS Safety Report 4511847-5 (Version None)
Quarter: 2004Q4

REPORT INFORMATION
  Report Type: 
  Country: None (occurrence: None)
  Receive Date: 20041129
  Receipt Date: 20030130
  Transmission Date: 20050328
  Serious: Yes (Hospitalization, Disabling, Other)
  Sender: FDA-Public Use
  Company Number: US-MERCK-0302USA00066

PATIENT
  Age: 63 Year
  Sex: Male
  Weight: 102 kg

DRUGS (18)
  1. VIOXX [Suspect]
     Indication: BACK PAIN
     Route: 048
     Dates: start: 20000621, end: 20000928
  2. VIOXX [Suspect]
     Route: 048
     Dates: start: 20010101
  3. VIOXX [Suspect]
     Route: 048
     Dates: start: 20000201, end: 20000601
  4. VIOXX [Suspect]
     Indication: PERICARDITIS
     Route: 048
     Dates: start: 20000621, end: 20000928
  5. VIOXX [Suspect]
     Route: 048
     Dates: start: 20010101
  6. VIOXX [Suspect]
     Route: 048
     Dates: start: 20000201, end: 20000601
  7. ZOLOFT [Concomitant]
     Route: 065
  8. TENORMIN [Concomitant]
     Route: 065
  9. TENORMIN [Concomitant]
     Route: 065
  10. TEMAZEPAM [Concomitant]
     Route: 065
  11. TAGAMET [Concomitant]
     Route: 065
  12. ASPIRIN [Concomitant]
     Route: 065
  13. AUGMENTIN '125' [Concomitant]
     Route: 065
  14. ZOCOR [Concomitant]
     Route: 048
  15. MOTRIN [Concomitant]
     Route: 065
  16. PLAVIX [Concomitant]
     Route: 065
  17. RELAFEN [Concomitant]
     Route: 065
  18. NITROSTAT [Concomitant]
     Route: 065

REACTIONS (35)
  - ABSCESS LIMB [None]
  - ANGINA PECTORIS [None]
  - ARTHRITIS [None]
  - CARPAL TUNNEL SYNDROME [None]
  - CERVICAL SPINAL STENOSIS [None]
  - CERVICOBRACHIAL SYNDROME [None]
  - CHEST PAIN [None]
  - CORONARY ARTERY DISEASE [None]
  - CYSTITIS [None]
  - DEPRESSION [None]
  - DIZZINESS [None]
  - DUODENAL ULCER [None]
  - EMOTIONAL DISTRESS [None]
  - ERECTILE DYSFUNCTION [None]
  - GASTRITIS [None]
  - GASTROENTERITIS HELICOBACTER [None]
  - HAEMATEMESIS [None]
  - HAEMORRHOIDS [None]
  - HYPERCALCAEMIA [None]
  - HYPERPARATHYROIDISM [None]
  - HYPERTENSION [None]
  - INJURY [None]
  - NAUSEA [None]
  - OEDEMA PERIPHERAL [None]
  - PAIN IN EXTREMITY [None]
  - PLANTAR FASCIITIS [None]
  - PLEURAL EFFUSION [None]
  - POSTOPERATIVE INFECTION [None]
  - POSTPERICARDIOTOMY SYNDROME [None]
  - RETROSTERNAL INFECTION [None]
  - SPONDYLOSIS [None]
  - TRICUSPID VALVE INCOMPETENCE [None]
  - ULNAR NERVE INJURY [None]
  - VENOUS THROMBOSIS LIMB [None]
  - VOMITING [None]
